FAERS Safety Report 9455227 (Version 1)
Quarter: 2013Q3

REPORT INFORMATION
  Report Type: Spontaneous
  Country: BR (occurrence: BR)
  Receive Date: 20130813
  Receipt Date: 20130813
  Transmission Date: 20140515
  Serious: Yes (Other)
  Sender: FDA-Public Use
  Company Number: BR-SANOFI-AVENTIS-2013SA079159

PATIENT
  Age: 45 Year
  Sex: Female
  Weight: 86 kg

DRUGS (4)
  1. LANTUS [Suspect]
     Indication: TYPE 2 DIABETES MELLITUS
     Route: 065
     Dates: start: 2010
  2. AUTOPEN 24 [Concomitant]
     Indication: DEVICE THERAPY
  3. JANUVIA [Concomitant]
     Indication: TYPE 2 DIABETES MELLITUS
     Dosage: STRENGTH:100 MG
     Route: 048
     Dates: start: 2008
  4. ACTOS [Concomitant]
     Indication: TYPE 2 DIABETES MELLITUS
     Dosage: STRENGTH: 30 MG
     Route: 048
     Dates: start: 2008

REACTIONS (2)
  - Blindness [Not Recovered/Not Resolved]
  - Diabetes mellitus inadequate control [Not Recovered/Not Resolved]
